FAERS Safety Report 17492378 (Version 1)
Quarter: 2020Q1

REPORT INFORMATION
  Report Type: Spontaneous
  Country: DE (occurrence: DE)
  Receive Date: 20200304
  Receipt Date: 20200304
  Transmission Date: 20200409
  Serious: Yes (Hospitalization)
  Sender: FDA-Public Use
  Company Number: DE-TEVA-2020-DE-1193710

PATIENT
  Age: 49 Year
  Sex: Female

DRUGS (3)
  1. AMOXICILLIN-RATIOPHARM 1000 MG FILMTABLETTEN [Suspect]
     Active Substance: AMOXICILLIN
     Indication: HELICOBACTER INFECTION
     Dosage: 1-0-1:1000 MILLIGRAM
     Route: 048
     Dates: start: 20200122, end: 20200123
  2. PANTOPRAZOL PUREN 40 MG MAGENSAFTRESISTENTE TABLETTEN [Concomitant]
     Indication: HELICOBACTER INFECTION
     Dosage: 1-0-1
     Route: 048
     Dates: start: 20200122, end: 20200123
  3. CLARITHROMYCIN BASICS 500 MG FILMTABLETTEN [Suspect]
     Active Substance: CLARITHROMYCIN
     Indication: HELICOBACTER INFECTION
     Dosage: 1-0-1:500 MILLIGRAM
     Route: 048
     Dates: start: 20200122, end: 20200123

REACTIONS (5)
  - Tongue discomfort [Recovering/Resolving]
  - Pharyngeal swelling [Recovering/Resolving]
  - Palatal disorder [Recovering/Resolving]
  - Glossodynia [Recovering/Resolving]
  - Oropharyngeal pain [Recovering/Resolving]

NARRATIVE: CASE EVENT DATE: 20200123
